FAERS Safety Report 8911769 (Version 1)
Quarter: 2012Q4

REPORT INFORMATION
  Report Type: 
  Country: IT (occurrence: IT)
  Receive Date: 20121116
  Receipt Date: 20121116
  Transmission Date: 20130627
  Serious: Yes (Other)
  Sender: FDA-Public Use
  Company Number: IT-PFIZER INC-2012286294

PATIENT
  Age: 84 Year
  Sex: Female
  Weight: 54 kg

DRUGS (5)
  1. XANAX [Suspect]
     Dosage: 25 mg, daily
     Route: 048
     Dates: start: 20120701, end: 20120731
  2. SIMVASTATIN [Concomitant]
     Dosage: UNK
  3. PANTOPRAZOLE [Concomitant]
     Dosage: UNK
  4. LERCANIDIPINE [Concomitant]
     Dosage: UNK
  5. CARDIOASPIRIN [Concomitant]
     Dosage: UNK

REACTIONS (2)
  - Hallucination [Recovering/Resolving]
  - Somnambulism [Recovering/Resolving]
